FAERS Safety Report 8610353 (Version 5)
Quarter: 2012Q4

REPORT INFORMATION
  Report Type: 
  Country: NO (occurrence: NO)
  Receive Date: 20120612
  Receipt Date: 20121121
  Transmission Date: 20130627
  Serious: Yes (Hospitalization, Disabling, Other)
  Sender: FDA-Public Use
  Company Number: NO-PFIZER INC-2012134613

PATIENT
  Age: 56 Year
  Sex: Male

DRUGS (3)
  1. LIPITOR [Suspect]
     Indication: HYPERCHOLESTERAEMIA
     Dosage: 20 mg, 1x/day
     Dates: start: 2011
  2. LIPITOR [Suspect]
     Dosage: 40 mg, 1x/day
     Route: 048
     Dates: start: 20120110, end: 20120610
  3. COZAAR [Concomitant]
     Indication: HYPERTENSION
     Dosage: 50 mg, 1x/day
     Route: 048

REACTIONS (7)
  - Polymyalgia rheumatica [Recovering/Resolving]
  - Rhabdomyolysis [Recovering/Resolving]
  - Renal failure [Not Recovered/Not Resolved]
  - Diabetes mellitus [Not Recovered/Not Resolved]
  - Myopathy [Recovering/Resolving]
  - Myositis [Recovering/Resolving]
  - Disturbance in attention [Recovering/Resolving]
